FAERS Safety Report 5341784-8 (Version None)
Quarter: 2007Q2

REPORT INFORMATION
  Report Type: 
  Country: None (occurrence: None)
  Receive Date: 20070601
  Receipt Date: 20070529
  Transmission Date: 20071010
  Serious: Yes (Life-Threatening)
  Sender: FDA-Public Use
  Company Number: GR-ELI_LILLY_AND_COMPANY-GR200705006852

PATIENT
  Age: 54 Year
  Sex: Female
  Weight: 110 kg

DRUGS (3)
  1. GEMZAR [Suspect]
     Indication: BILE DUCT CANCER
     Dosage: 2400 MG, UNK
     Route: 042
     Dates: start: 20070228
  2. IRBESARTAN AND HYDROCHLOROTHIAZIDE [Concomitant]
     Indication: HYPERTENSION
     Dosage: 300 MG + 12 MG, DAILY (1/D)
     Route: 048
     Dates: start: 19970101
  3. GLYBURIDE AND METFORMIN HCL [Concomitant]
     Indication: DIABETES MELLITUS
     Dosage: UNK UNK, 3/D
     Route: 048
     Dates: start: 19970101

REACTIONS (5)
  - ASCITES [None]
  - CHEST PAIN [None]
  - CHOKING SENSATION [None]
  - DYSPNOEA [None]
  - HYPOTENSION [None]
